FAERS Safety Report 5320606-5 (Version None)
Quarter: 2007Q2

REPORT INFORMATION
  Report Type: 
  Country: None (occurrence: None)
  Receive Date: 20070209
  Receipt Date: 20061121
  Transmission Date: 20071010
  Serious: No
  Sender: FDA-Public Use
  Company Number: 200619588US

PATIENT
  Sex: Male

DRUGS (3)
  1. INSULIN GLUISINE (APIDRA) [Suspect]
  2. LANTUS [Suspect]
     Dosage: 38 U QD
  3. OPTICLIK [Suspect]

REACTIONS (2)
  - BLOOD GLUCOSE DECREASED [None]
  - MEDICATION ERROR [None]
